FAERS Safety Report 7479560-2 (Version None)
Quarter: 2011Q2

REPORT INFORMATION
  Report Type: 
  Country: None (occurrence: None)
  Receive Date: 20110513
  Receipt Date: 20110510
  Transmission Date: 20111010
  Serious: Yes (Other)
  Sender: FDA-Public Use
  Company Number: US-PFIZER INC-2011065618

PATIENT
  Sex: Male

DRUGS (1)
  1. NEURONTIN [Suspect]
     Indication: NEUROPATHY PERIPHERAL
     Dosage: 1200 MG (4 CAPSULES OF 300MG), 3X/DAY
     Dates: start: 19910101

REACTIONS (2)
  - LEG AMPUTATION [None]
  - DRUG INEFFECTIVE [None]
